APPROVED DRUG PRODUCT: STERILE UREA
Active Ingredient: UREA
Strength: 40GM/VIAL
Dosage Form/Route: INJECTABLE;INJECTION
Application: N017698 | Product #001
Applicant: HOSPIRA INC
Approved: Approved Prior to Jan 1, 1982 | RLD: No | RS: No | Type: DISCN